FAERS Safety Report 5781130-9 (Version None)
Quarter: 2008Q2

REPORT INFORMATION
  Report Type: 
  Country: None (occurrence: None)
  Receive Date: 20080620
  Receipt Date: 20080609
  Transmission Date: 20081010
  Serious: Yes (Other)
  Sender: FDA-Public Use
  Company Number: US-PFIZER INC-2007108032

PATIENT
  Sex: Male
  Weight: 73.5 kg

DRUGS (6)
  1. LYRICA [Suspect]
     Indication: PAIN IN EXTREMITY
     Route: 048
  2. LYRICA [Suspect]
     Indication: NEUROPATHY PERIPHERAL
  3. NEURONTIN [Concomitant]
  4. CYMBALTA [Concomitant]
  5. XANAX [Concomitant]
  6. HYDROCODONE [Concomitant]

REACTIONS (6)
  - ABNORMAL BEHAVIOUR [None]
  - AGGRESSION [None]
  - CONFUSIONAL STATE [None]
  - HALLUCINATION [None]
  - LOSS OF CONSCIOUSNESS [None]
  - PSYCHOTIC BEHAVIOUR [None]
